FAERS Safety Report 16973935 (Version 1)
Quarter: 2019Q4

REPORT INFORMATION
  Report Type: Report from Study
  Country: IT (occurrence: IT)
  Receive Date: 20191030
  Receipt Date: 20191030
  Transmission Date: 20200122
  Serious: Yes (Hospitalization)
  Sender: FDA-Public Use
  Company Number: IT-TEVA-2019-IT-1129363

PATIENT
  Age: 85 Year
  Sex: Female

DRUGS (7)
  1. LANSOX 30 MG COMPRESSE ORODISPERSIBILI [Concomitant]
  2. SIVASTIN 20 MG COMPRESSE RIVESTITE CON FILM [Concomitant]
     Active Substance: SIMVASTATIN
  3. LORAZEPAM. [Suspect]
     Active Substance: LORAZEPAM
     Indication: INSOMNIA
     Route: 048
  4. FERRO GRAD C [Concomitant]
  5. SOTALEX 80 MG COMPRESSE [Concomitant]
     Active Substance: SOTALOL
  6. CONTRAMAL 100 MG COMPRESSE A RILASCIO PROLUNGATO [Concomitant]
  7. OPTALIDON (IBUPROFEN) [Suspect]
     Active Substance: IBUPROFEN
     Indication: ARTHRALGIA

REACTIONS (2)
  - Loss of consciousness [Recovering/Resolving]
  - Syncope [Recovering/Resolving]

NARRATIVE: CASE EVENT DATE: 20190826
